FAERS Safety Report 20993873 (Version 4)
Quarter: 2023Q1

REPORT INFORMATION
  Report Type: Report from Study
  Country: CL (occurrence: CL)
  Receive Date: 20220622
  Receipt Date: 20230322
  Transmission Date: 20230417
  Serious: Yes (Other)
  Sender: FDA-Public Use
  Company Number: CL-NOVARTISPH-NVSC2022CL141445

PATIENT
  Age: 53 Year
  Sex: Female

DRUGS (3)
  1. ZOMETA [Suspect]
     Active Substance: ZOLEDRONIC ACID
     Indication: Bone disorder
     Dosage: UNK UNK, Q3MO
     Route: 065
  2. TIADIS [Concomitant]
     Indication: Product used for unknown indication
     Dosage: UNK
     Route: 048
  3. PALBOCICLIB [Concomitant]
     Active Substance: PALBOCICLIB
     Indication: Product used for unknown indication
     Dosage: UNK
     Route: 065

REACTIONS (9)
  - Breast cancer [Unknown]
  - Pyrexia [Unknown]
  - Liver injury [Unknown]
  - Metastases to liver [Unknown]
  - Nervousness [Unknown]
  - Illness [Unknown]
  - Feeling abnormal [Unknown]
  - Fear [Unknown]
  - Malaise [Unknown]

NARRATIVE: CASE EVENT DATE: 20120101
